FAERS Safety Report 16242224 (Version 1)
Quarter: 2019Q2

REPORT INFORMATION
  Report Type: Spontaneous
  Country: US (occurrence: US)
  Receive Date: 20190322
  Receipt Date: 20190322
  Transmission Date: 20190711
  Serious: No
  Sender: FDA-Public Use
  Company Number: None

PATIENT
  Age: 36 Year
  Sex: Female

DRUGS (1)
  1. JADENU [Suspect]
     Active Substance: DEFERASIROX
     Indication: PRODUCT USED FOR UNKNOWN INDICATION
     Dates: start: 20190322

REACTIONS (3)
  - Treatment noncompliance [None]
  - Drug intolerance [None]
  - Therapy change [None]

NARRATIVE: CASE EVENT DATE: 20190322
